FAERS Safety Report 4767869-2 (Version None)
Quarter: 2005Q3

REPORT INFORMATION
  Report Type: 
  Country: None (occurrence: None)
  Receive Date: 20050912
  Receipt Date: 20050902
  Transmission Date: 20060218
  Serious: Yes (Hospitalization, Other)
  Sender: FDA-Public Use
  Company Number: KII-2005-0018417

PATIENT
  Age: 30 Year
  Sex: Female

DRUGS (5)
  1. MORPHINE SULFATE [Suspect]
     Dosage: ORAL
     Route: 048
  2. ETHANOL(ETHANOL) [Suspect]
     Dosage: ORAL
     Route: 048
  3. TETRAHYDROCANNABINOL(TETRAHYDROCANNABINOL) [Suspect]
  4. EMFETAMINE(AMFETAMINE) [Suspect]
  5. COCAINE(COCAINE) [Suspect]

REACTIONS (4)
  - BLOOD ETHANOL INCREASED [None]
  - COMA [None]
  - POLYSUBSTANCE ABUSE [None]
  - TEARFULNESS [None]
